FAERS Safety Report 8122431-9 (Version None)
Quarter: 2012Q1

REPORT INFORMATION
  Report Type: 
  Country: None (occurrence: None)
  Receive Date: 20120207
  Receipt Date: 20120207
  Transmission Date: 20120608
  Serious: Yes (Hospitalization)
  Sender: FDA-Public Use
  Company Number: None

PATIENT
  Age: 45 Year
  Sex: Male
  Weight: 66.6 kg

DRUGS (8)
  1. MORPHINE SULFATE [Concomitant]
  2. OMEPRAZOLE [Concomitant]
  3. ARZERRA [Suspect]
  4. DILAUDID [Concomitant]
  5. ARZERRA [Suspect]
  6. LOVENOX [Concomitant]
  7. VALTREX [Concomitant]
  8. OFATUMUMAB 1000 MG GSK [Suspect]
     Indication: DIFFUSE LARGE B-CELL LYMPHOMA
     Dosage: 1000 MG Q WEEK IV
     Route: 042
     Dates: start: 20111215, end: 20120120

REACTIONS (2)
  - HEPATIC HAEMORRHAGE [None]
  - ABDOMINAL PAIN UPPER [None]
